FAERS Safety Report 7400654-1 (Version None)
Quarter: 2011Q2

REPORT INFORMATION
  Report Type: 
  Country: None (occurrence: None)
  Receive Date: 20110407
  Receipt Date: 20110325
  Transmission Date: 20111010
  Serious: Yes (Other)
  Sender: FDA-Public Use
  Company Number: PHHY2011IT24997

PATIENT
  Age: 71 Year
  Sex: Female

DRUGS (4)
  1. DEXAMETHASONE [Suspect]
     Indication: DIFFUSE LARGE B-CELL LYMPHOMA
     Dosage: 20 MG/WEEK
  2. LENALIDOMIDE [Suspect]
     Dosage: 25 MG, ON DAYS 1-21 OF EVERY 28-DAY
     Route: 048
  3. LENALIDOMIDE [Suspect]
     Dosage: 15 MG, DAILY
  4. DEXAMETHASONE [Suspect]
     Dosage: 10 MG, QW

REACTIONS (2)
  - FATIGUE [None]
  - NEUTROPENIA [None]
